FAERS Safety Report 9442262 (Version 1)
Quarter: 2013Q3

REPORT INFORMATION
  Report Type: Spontaneous
  Country: US (occurrence: None)
  Receive Date: 20130806
  Receipt Date: 20130806
  Transmission Date: 20140515
  Serious: Yes (Other)
  Sender: FDA-Public Use
  Company Number: None

PATIENT
  Age: 53 Year
  Sex: Male
  Weight: 94.35 kg

DRUGS (14)
  1. TESTOSTERONE CYPIONATE [Suspect]
     Indication: BLOOD TESTOSTERONE DECREASED
     Dosage: WEEKLY  INJECTIONS
     Dates: start: 20130310, end: 20130620
  2. TESTOSTERONE CYPIONATE [Suspect]
     Indication: BLOOD GROWTH HORMONE
     Dosage: WEEKLY  INJECTIONS
     Dates: start: 20130310, end: 20130620
  3. HCG [Concomitant]
     Dosage: WEEKLY INJECTIONS
  4. HCG [Concomitant]
     Dosage: WEEKLY INJECTIONS
  5. ANASTRAZOLE [Concomitant]
  6. B12 [Concomitant]
  7. CLOMIPHENE [Concomitant]
  8. AMBIEN [Concomitant]
  9. HYDROCODONE [Concomitant]
  10. ALPRAZOLAM [Concomitant]
  11. LISINOPRIL [Concomitant]
  12. GNC MEGA MAN VITAMIN [Concomitant]
  13. FISH OIL [Concomitant]
  14. ASPIRIN [Concomitant]

REACTIONS (2)
  - Back pain [None]
  - Product quality issue [None]
